FAERS Safety Report 18336520 (Version 1)
Quarter: 2020Q4

REPORT INFORMATION
  Report Type: Report from Study
  Country: TH (occurrence: TH)
  Receive Date: 20201001
  Receipt Date: 20201001
  Transmission Date: 20210113
  Serious: Yes (Other)
  Sender: FDA-Public Use
  Company Number: NVSC2020TH263100

PATIENT
  Age: 20 Year
  Sex: Female
  Weight: 44 kg

DRUGS (1)
  1. NEORAL [Suspect]
     Active Substance: CYCLOSPORINE
     Indication: PROPHYLAXIS AGAINST TRANSPLANT REJECTION
     Dosage: UNK (SINGLE DOSE - AROUND 6 HOURS BEFORE UNDERGOING SURGERY)
     Route: 048

REACTIONS (3)
  - Arrhythmia [Recovered/Resolved]
  - Hot flush [Recovered/Resolved]
  - Insomnia [Recovered/Resolved]

NARRATIVE: CASE EVENT DATE: 20160909
